FAERS Safety Report 10750436 (Version 1)
Quarter: 2015Q1

REPORT INFORMATION
  Report Type: Report from Study
  Country: GB (occurrence: GB)
  Receive Date: 20150130
  Receipt Date: 20150130
  Transmission Date: 20150721
  Serious: Yes (Death)
  Sender: FDA-Public Use
  Company Number: GB-ROCHE-1514151

PATIENT
  Age: 87 Year
  Sex: Female
  Weight: 69 kg

DRUGS (10)
  1. MATRIFEN [Concomitant]
     Active Substance: FENTANYL
     Route: 065
  2. RANIBIZUMAB [Suspect]
     Active Substance: RANIBIZUMAB
     Route: 050
     Dates: start: 20140802, end: 20140802
  3. TRIAMTERENE. [Concomitant]
     Active Substance: TRIAMTERENE
  4. SITAGLIPTIN [Concomitant]
     Active Substance: SITAGLIPTIN
  5. RANIBIZUMAB [Suspect]
     Active Substance: RANIBIZUMAB
     Indication: AGE-RELATED MACULAR DEGENERATION
     Route: 050
     Dates: start: 20091006
  6. TIOTROPIUM [Concomitant]
     Active Substance: TIOTROPIUM
  7. PREDNISOLONE. [Concomitant]
     Active Substance: PREDNISOLONE
  8. VENTOLIN [Concomitant]
     Active Substance: ALBUTEROL SULFATE
  9. FUROSEMIDE. [Concomitant]
     Active Substance: FUROSEMIDE
  10. VERAPAMIL [Concomitant]
     Active Substance: VERAPAMIL HYDROCHLORIDE

REACTIONS (1)
  - Death [Fatal]

NARRATIVE: CASE EVENT DATE: 20140916
